FAERS Safety Report 8162770-9 (Version None)
Quarter: 2012Q1

REPORT INFORMATION
  Report Type: 
  Country: None (occurrence: None)
  Receive Date: 20120103
  Receipt Date: 20110911
  Transmission Date: 20120608
  Serious: No
  Sender: FDA-Public Use
  Company Number: AE-2011-001477

PATIENT
  Age: 54 Year
  Sex: Female
  Weight: 77.1115 kg

DRUGS (5)
  1. LOZOL [Concomitant]
  2. RIBAVIRIN [Concomitant]
  3. LISINOPRIL [Concomitant]
  4. INCIVEK [Suspect]
     Dosage: (3 IN 1 D)
     Dates: start: 20110909
  5. PEGINTERFERON (PEGINTERFERON ALFA-2A) [Concomitant]

REACTIONS (2)
  - PYREXIA [None]
  - HEADACHE [None]
